FAERS Safety Report 23063893 (Version 1)
Quarter: 2023Q4

REPORT INFORMATION
  Report Type: Spontaneous
  Country: FR (occurrence: FR)
  Receive Date: 20231013
  Receipt Date: 20231013
  Transmission Date: 20240110
  Serious: Yes (Hospitalization)
  Sender: FDA-Public Use
  Company Number: None

PATIENT
  Age: 55 Year
  Sex: Male
  Weight: 68 kg

DRUGS (10)
  1. CLOZAPINE [Interacting]
     Active Substance: CLOZAPINE
     Indication: Schizophrenia
  2. RISPERIDONE [Interacting]
     Active Substance: RISPERIDONE
     Indication: Schizophrenia
     Dates: start: 20230904
  3. RISPERIDONE [Interacting]
     Active Substance: RISPERIDONE
     Dates: end: 20230903
  4. ATROPINE SULFATE [Interacting]
     Active Substance: ATROPINE SULFATE
     Indication: Salivary hypersecretion
     Dosage: MORNING AND EVENING IF HYPERSIALORRHEA
  5. TERALITHE [Interacting]
     Active Substance: LITHIUM CARBONATE
     Indication: Schizophrenia
     Dates: start: 20230904
  6. TERALITHE [Interacting]
     Active Substance: LITHIUM CARBONATE
     Dates: end: 20230830
  7. TERALITHE [Interacting]
     Active Substance: LITHIUM CARBONATE
     Dates: start: 20230901, end: 20230903
  8. LORMETAZEPAM [Interacting]
     Active Substance: LORMETAZEPAM
     Indication: Sleep disorder
  9. DEPAKOTE [Interacting]
     Active Substance: DIVALPROEX SODIUM
     Indication: Schizophrenia
  10. TROPATEPINE HYDROCHLORIDE [Interacting]
     Active Substance: TROPATEPINE HYDROCHLORIDE
     Indication: Parkinsonism

REACTIONS (3)
  - Extrapyramidal disorder [Recovering/Resolving]
  - Fall [Recovering/Resolving]
  - Drug interaction [Recovered/Resolved]

NARRATIVE: CASE EVENT DATE: 20230821
